FAERS Safety Report 5290491-9 (Version None)
Quarter: 2007Q2

REPORT INFORMATION
  Report Type: 
  Country: None (occurrence: None)
  Receive Date: 20070404
  Receipt Date: 20070404
  Transmission Date: 20071010
  Serious: No
  Sender: FDA-Public Use
  Company Number: None

PATIENT

DRUGS (4)
  1. COREG CR  ( CARVEDILOL PHOSPHATE) [Suspect]
     Dosage: CAPSULE,  EXTENDED RELEASE
  2. COREG CR [Suspect]
     Dosage: CAPSULE, EXTENDED RELEASE
  3. COREG CR [Suspect]
     Dosage: CAPSULE, EXTENDED RELEASE
  4. COREG CR [Suspect]
     Dosage: CAPSULE, EXTENDED RELEASE

REACTIONS (1)
  - MEDICATION ERROR [None]
